FAERS Safety Report 4652091-0 (Version None)
Quarter: 2005Q2

REPORT INFORMATION
  Report Type: 
  Country: None (occurrence: None)
  Receive Date: 20050504
  Receipt Date: 20050426
  Transmission Date: 20051028
  Serious: Yes (Hospitalization, Other)
  Sender: FDA-Public Use
  Company Number: 200513556US

PATIENT
  Sex: 0

DRUGS (2)
  1. AMARYL [Suspect]
     Dosage: DOSE: UNK
  2. FLUOROQUINOLONE [Suspect]
     Dosage: DOSE: UNK

REACTIONS (1)
  - DRUG INTERACTION [None]
